FAERS Safety Report 5870456-6 (Version None)
Quarter: 2008Q3

REPORT INFORMATION
  Report Type: 
  Country: None (occurrence: None)
  Receive Date: 20080904
  Receipt Date: 20070926
  Transmission Date: 20090109
  Serious: No
  Sender: FDA-Public Use
  Company Number: US-BRISTOL-MYERS SQUIBB COMPANY-13921267

PATIENT
  Age: 12 Year
  Sex: Male
  Weight: 185 kg

DRUGS (1)
  1. DEFINITY [Suspect]
     Indication: ECHOCARDIOGRAM
     Dates: start: 20070926, end: 20070926

REACTIONS (2)
  - BACK PAIN [None]
  - MUSCLE SPASMS [None]
